FAERS Safety Report 4609708-6 (Version None)
Quarter: 2005Q1

REPORT INFORMATION
  Report Type: 
  Country: None (occurrence: None)
  Receive Date: 20050314
  Receipt Date: 20050303
  Transmission Date: 20050727
  Serious: Yes (Hospitalization, Other)
  Sender: FDA-Public Use
  Company Number: 2005-03-0203

PATIENT
  Age: 40 Year
  Sex: Female

DRUGS (1)
  1. INTRON A [Suspect]
     Indication: HEPATITIS C
     Dosage: INTRAMUSCULAR
     Route: 030

REACTIONS (12)
  - ADENOMA BENIGN [None]
  - ADRENAL MASS [None]
  - CONDITION AGGRAVATED [None]
  - CUSHING'S SYNDROME [None]
  - DEPRESSIVE SYMPTOM [None]
  - DIABETES MELLITUS [None]
  - HYPERTENSION [None]
  - MALAISE [None]
  - MENOPAUSAL SYMPTOMS [None]
  - OBESITY [None]
  - PSYCHIATRIC SYMPTOM [None]
  - WEIGHT INCREASED [None]
